FAERS Safety Report 5937882-8 (Version None)
Quarter: 2008Q4

REPORT INFORMATION
  Report Type: 
  Country: None (occurrence: None)
  Receive Date: 20081031
  Receipt Date: 20081021
  Transmission Date: 20090506
  Serious: Yes (Death, Life-Threatening, Hospitalization)
  Sender: FDA-Public Use
  Company Number: FR-PFIZER INC-2008089075

PATIENT
  Age: 61 Year
  Sex: Male

DRUGS (4)
  1. NEURONTIN [Suspect]
     Indication: NEURALGIA
     Route: 048
     Dates: start: 20080401
  2. REVLIMID [Suspect]
     Indication: LIGHT CHAIN DISEASE
     Route: 048
     Dates: start: 20080519
  3. ROCEPHIN [Suspect]
     Indication: PYREXIA
     Dates: start: 20080603
  4. METRONIDAZOLE [Suspect]
     Indication: PYREXIA
     Dates: start: 20080603

REACTIONS (1)
  - TOXIC EPIDERMAL NECROLYSIS [None]
